FAERS Safety Report 9511481 (Version 1)
Quarter: 2013Q3

REPORT INFORMATION
  Report Type: Spontaneous
  Country: CA (occurrence: None)
  Receive Date: 20130909
  Receipt Date: 20130909
  Transmission Date: 20140515
  Serious: Yes (Hospitalization, Disabling)
  Sender: FDA-Public Use
  Company Number: None

PATIENT
  Age: 45 Year
  Sex: Female
  Weight: 45.36 kg

DRUGS (9)
  1. CIPROFLOXACIN [Suspect]
     Indication: URINARY TRACT INFECTION
     Dosage: ONCE A DAY FOR 7 DAYS
     Route: 048
     Dates: start: 20111211, end: 20111218
  2. PROZAC [Concomitant]
     Indication: URINARY TRACT INFECTION
  3. GABAPENTIN [Concomitant]
  4. LYRICA [Concomitant]
  5. CYMBALTA [Concomitant]
  6. VITAMIN B12 [Concomitant]
  7. MAGNESIUM [Concomitant]
  8. HERBAL INSTINCT/NATURAL WAY [Concomitant]
  9. SELENIUM [Concomitant]

REACTIONS (1)
  - No adverse event [None]
